FAERS Safety Report 5215070-0 (Version None)
Quarter: 2006Q4

REPORT INFORMATION
  Report Type: 
  Country: None (occurrence: None)
  Receive Date: 20061107
  Receipt Date: 20060911
  Transmission Date: 20070319
  Serious: No
  Sender: FDA-Public Use
  Company Number: 200611701BWH

PATIENT
  Age: 67 Year
  Sex: Male
  Weight: 81.6475 kg

DRUGS (2)
  1. LEVITRA [Suspect]
     Indication: ERECTILE DYSFUNCTION
     Dosage: SEE IMAGE
     Route: 048
     Dates: start: 20041201
  2. ZOCOR [Concomitant]

REACTIONS (5)
  - EYE DISORDER [None]
  - FLUSHING [None]
  - HEADACHE [None]
  - VISION BLURRED [None]
  - VITREOUS FLOATERS [None]
